FAERS Safety Report 6120306-8 (Version None)
Quarter: 2009Q1

REPORT INFORMATION
  Report Type: 
  Country: None (occurrence: None)
  Receive Date: 20090312
  Receipt Date: 20090225
  Transmission Date: 20090719
  Serious: Yes (Hospitalization)
  Sender: FDA-Public Use
  Company Number: 09P-261-0559148-00

PATIENT
  Age: 6 Month
  Sex: Male

DRUGS (1)
  1. SYNAGIS [Suspect]
     Indication: DRUG USE FOR UNKNOWN INDICATION
     Dosage: INTRAMUSCULAR
     Route: 030
     Dates: start: 20081124, end: 20081124

REACTIONS (1)
  - APNOEA [None]
